FAERS Safety Report 7515698-9 (Version None)
Quarter: 2011Q2

REPORT INFORMATION
  Report Type: 
  Country: None (occurrence: None)
  Receive Date: 20110601
  Receipt Date: 20110523
  Transmission Date: 20111010
  Serious: Yes (Hospitalization)
  Sender: FDA-Public Use
  Company Number: US-JNJFOC-20110505027

PATIENT
  Age: 54 Year
  Sex: Male
  Weight: 73.03 kg

DRUGS (19)
  1. ALBUTEROL SULFATE AUTOHALER [Concomitant]
     Route: 065
  2. DOXORUBICIN HCL [Suspect]
     Indication: MULTIPLE MYELOMA
     Dosage: 56 MG, DAY 4 OF EACH CYCLE IN 3 WEEKS
     Route: 042
     Dates: start: 20110226
  3. PRILOSEC [Concomitant]
     Route: 065
  4. COMPAZINE [Concomitant]
     Route: 065
  5. NEPHROCAPS [Concomitant]
     Route: 065
  6. DULCOLAX [Concomitant]
     Route: 065
  7. ALLEGRA [Concomitant]
     Route: 065
  8. INSULIN [Concomitant]
     Route: 065
  9. ZOFRAN [Concomitant]
     Route: 065
  10. LOPRESSOR [Concomitant]
     Route: 065
  11. DEXAMETHASONE [Suspect]
     Indication: MULTIPLE MYELOMA
     Dosage: 40 MG; COURSE-1 ON DAY1, 4, 8/COURSE 2, DAY-1
     Route: 042
     Dates: start: 20110224, end: 20110315
  12. CLONIDINE [Concomitant]
     Route: 065
  13. FISH OIL [Concomitant]
     Route: 065
  14. AMLODIPINE [Concomitant]
     Route: 065
  15. SENOKOT [Concomitant]
     Route: 065
  16. VELCADE [Suspect]
     Indication: MULTIPLE MYELOMA
     Dosage: STRENGTH- 3.5 MG; TWICE WEELKY(ON DAY 1 AND 4) ; ONE WEEK OFF, ONCE IN 7 DAYS; ONCE IN 14 DAYS
     Route: 042
     Dates: start: 20110224
  17. ACETAMINOPHEN [Concomitant]
     Route: 065
  18. VITAMIN B COMPLEX CAP [Concomitant]
     Route: 065
  19. BACTROBAN [Concomitant]
     Route: 065

REACTIONS (2)
  - CATHETER SITE INFECTION [None]
  - PNEUMONIA [None]
